FAERS Safety Report 12148485 (Version 2)
Quarter: 2016Q1

REPORT INFORMATION
  Report Type: Report from Study
  Country: US (occurrence: US)
  Receive Date: 20160304
  Receipt Date: 20160314
  Transmission Date: 20160526
  Serious: Yes (Life-Threatening, Hospitalization, Other)
  Sender: FDA-Public Use
  Company Number: US-KADMON PHARMACEUTICALS, LLC-KAD201603-000810

PATIENT
  Age: 56 Year
  Sex: Male

DRUGS (19)
  1. RIBAVIRIN 600 MG TABLETS [Suspect]
     Active Substance: RIBAVIRIN
     Indication: HEPATITIS C
     Route: 048
     Dates: start: 20151123
  2. DIAZEPAM. [Concomitant]
     Active Substance: DIAZEPAM
  3. FINASTERIDE. [Concomitant]
     Active Substance: FINASTERIDE
  4. ATROVENT [Concomitant]
     Active Substance: IPRATROPIUM BROMIDE
  5. TEMAZEPAM. [Concomitant]
     Active Substance: TEMAZEPAM
  6. OMEPRAZOLE. [Concomitant]
     Active Substance: OMEPRAZOLE
  7. SIMVASTATIN. [Concomitant]
     Active Substance: SIMVASTATIN
  8. PROAIR HFA [Concomitant]
     Active Substance: ALBUTEROL SULFATE
  9. LEXAPRO [Concomitant]
     Active Substance: ESCITALOPRAM OXALATE
  10. NORCO (VICODIN) [Concomitant]
  11. TORSEMIDE. [Concomitant]
     Active Substance: TORSEMIDE
  12. GABAPENTIN. [Concomitant]
     Active Substance: GABAPENTIN
  13. FOLIC ACID. [Concomitant]
     Active Substance: FOLIC ACID
  14. VIEKIRA PAK [Suspect]
     Active Substance: DASABUVIR\OMBITASVIR\PARITAPREVIR\RITONAVIR
     Indication: HEPATITIS C
     Dosage: TABLET
     Route: 048
     Dates: start: 20151123
  15. DUONEB [Concomitant]
     Active Substance: ALBUTEROL SULFATE\IPRATROPIUM BROMIDE
  16. MELOXICAM. [Concomitant]
     Active Substance: MELOXICAM
  17. SPIRONOLACTONE. [Concomitant]
     Active Substance: SPIRONOLACTONE
  18. LEVOTHYROXINE. [Concomitant]
     Active Substance: LEVOTHYROXINE
  19. ADVAIR (SERETIDE) [Concomitant]

REACTIONS (8)
  - White blood cell count increased [Recovered/Resolved]
  - Lung infection [Recovered/Resolved]
  - Stomatitis [Unknown]
  - Chronic obstructive pulmonary disease [Recovered/Resolved]
  - Blood potassium increased [Recovered/Resolved]
  - Diabetes mellitus [Recovered/Resolved]
  - Weight decreased [Unknown]
  - Blood sodium decreased [Recovered/Resolved]

NARRATIVE: CASE EVENT DATE: 201512
